FAERS Safety Report 9838937 (Version 1)
Quarter: 2013Q4

REPORT INFORMATION
  Report Type: Spontaneous
  Country: US (occurrence: None)
  Receive Date: 20131206
  Receipt Date: 20131206
  Transmission Date: 20140711
  Serious: Yes (Other)
  Sender: FDA-Public Use
  Company Number: 385924

PATIENT
  Age: 36 Year
  Sex: Male
  Weight: 92.99 kg

DRUGS (12)
  1. NOVOLOG [Suspect]
     Indication: TYPE 1 DIABETES MELLITUS
     Dosage: SUBCUTAN.-PUMP
     Dates: start: 2003, end: 2012
  2. LEVEMIR [Concomitant]
  3. LEVOTHYROXINE (LEVOTHYROXINE) [Concomitant]
  4. RANITIDINE (RANITIDINE) [Concomitant]
  5. ANTIHISTAMINES [Concomitant]
  6. METHYLPHENIDATE [Concomitant]
  7. ZYRTEC (CETIRIZINE HYDROCHLORIDE) [Concomitant]
  8. COMBIVENT (IPRATROPIUM BROMIDE, SALBUTAMOL SULFATE) [Concomitant]
  9. CROMLYN (CROMOGLICATE SODIUM) [Concomitant]
  10. ALPROZOLAM (ALPROZOLAM) [Concomitant]
  11. PREDNISONE (PREDNISONE) [Concomitant]
  12. SINGULAIR [Concomitant]

REACTIONS (1)
  - Anaphylactic reaction [None]
